FAERS Safety Report 21970454 (Version 1)
Quarter: 2023Q1

REPORT INFORMATION
  Report Type: Report from Study
  Country: DE (occurrence: DE)
  Receive Date: 20230209
  Receipt Date: 20230209
  Transmission Date: 20230418
  Serious: Yes (Death, Life-Threatening)
  Sender: FDA-Public Use
  Company Number: DE-SUN PHARMACEUTICAL INDUSTRIES LTD-2023RR-374029

PATIENT
  Age: 99 Year
  Sex: Female

DRUGS (6)
  1. SONIDEGIB [Suspect]
     Active Substance: SONIDEGIB
     Indication: Basal cell carcinoma
     Dosage: 200 MILLIGRAM, DAILY
     Route: 048
     Dates: start: 20191118, end: 20221010
  2. Novodigal [Concomitant]
     Indication: Pre-existing disease
     Dosage: 0.1 MILLIGRAM, DAILY
     Route: 048
  3. XARELTO [Concomitant]
     Active Substance: RIVAROXABAN
     Indication: Pre-existing disease
     Dosage: 15 MILLIGRAM, BID
     Route: 048
  4. METHIMAZOLE [Concomitant]
     Active Substance: METHIMAZOLE
     Indication: Pre-existing disease
     Dosage: 10 MILLIGRAM, DAILY
     Route: 048
  5. Sab Simplex [Concomitant]
     Indication: Pre-existing disease
     Dosage: UNK, TID
     Route: 065
  6. METOPROLOL SUCCINATE [Concomitant]
     Active Substance: METOPROLOL SUCCINATE
     Indication: Pre-existing disease
     Dosage: 95 MILLIGRAM, BID
     Route: 048

REACTIONS (1)
  - Basal cell carcinoma [Fatal]
